FAERS Safety Report 19519557 (Version 2)
Quarter: 2021Q4

REPORT INFORMATION
  Report Type: Report from Study
  Country: CO (occurrence: CO)
  Receive Date: 20210712
  Receipt Date: 20211115
  Transmission Date: 20220303
  Serious: Yes (Other)
  Sender: FDA-Public Use
  Company Number: CO-NOVARTISPH-NVSC2021CO143995

PATIENT
  Sex: Female
  Weight: 64 kg

DRUGS (3)
  1. AFINITOR [Suspect]
     Active Substance: EVEROLIMUS
     Indication: Breast cancer
     Dosage: 10 MG, QD
     Route: 048
     Dates: start: 202106
  2. EXEMESTANE [Concomitant]
     Active Substance: EXEMESTANE
     Indication: Breast cancer
     Dosage: 25 MG, QD
     Route: 048
     Dates: start: 202106
  3. INSULIN NOS [Concomitant]
     Active Substance: INSULIN NOS
     Indication: Diabetes mellitus
     Dosage: 32 IU, Q8H
     Route: 048
     Dates: start: 2012

REACTIONS (6)
  - Immunosuppression [Unknown]
  - Hyperaesthesia teeth [Unknown]
  - Gingival pain [Unknown]
  - Diarrhoea [Unknown]
  - Mucosal inflammation [Unknown]
  - Glossitis [Unknown]
